FAERS Safety Report 6150279-3 (Version None)
Quarter: 2009Q2

REPORT INFORMATION
  Report Type: 
  Country: None (occurrence: None)
  Receive Date: 20090407
  Receipt Date: 20090323
  Transmission Date: 20091009
  Serious: Yes (Death)
  Sender: FDA-Public Use
  Company Number: 2009182153

PATIENT
  Age: 78 Year
  Sex: Male
  Weight: 66 kg

DRUGS (9)
  1. FRAGMIN [Suspect]
     Indication: THROMBOSIS PROPHYLAXIS
     Dosage: 5000 IU
     Dates: start: 20090213, end: 20090302
  2. ASPIRIN [Concomitant]
  3. ACETAMINOPHEN [Concomitant]
  4. CASODEX [Concomitant]
  5. BISOPROLOL FUMARATE [Concomitant]
  6. EZETIMIBE/SIMVASTATIN (EZETIMIBE SIMVASTATIN) [Concomitant]
  7. PANTOPRAZOLE SODIUM [Concomitant]
  8. LESCOL [Concomitant]
  9. BISOPROLOL FUMARATE [Concomitant]

REACTIONS (2)
  - GASTROINTESTINAL HAEMORRHAGE [None]
  - SHOCK HAEMORRHAGIC [None]
